FAERS Safety Report 6249348-9 (Version None)
Quarter: 2009Q2

REPORT INFORMATION
  Report Type: 
  Country: None (occurrence: None)
  Receive Date: 20090629
  Receipt Date: 20090603
  Transmission Date: 20091009
  Serious: Yes (Other)
  Sender: FDA-Public Use
  Company Number: JP-MERCK-0906USA01536

PATIENT
  Sex: Female
  Weight: 3 kg

DRUGS (6)
  1. PEPCID [Suspect]
     Route: 064
  2. ZYPREXA [Suspect]
     Route: 064
  3. CONSTAN [Concomitant]
     Route: 064
  4. CERCINE [Concomitant]
     Route: 064
  5. BICAMOL [Suspect]
     Route: 064
  6. CABAGIN FINE GRAINS [Concomitant]
     Route: 064

REACTIONS (4)
  - CYANOSIS CENTRAL [None]
  - DRUG WITHDRAWAL SYNDROME NEONATAL [None]
  - NEONATAL RESPIRATORY DISTRESS SYNDROME [None]
  - OXYGEN SATURATION DECREASED [None]
